FAERS Safety Report 5961992-2 (Version None)
Quarter: 2008Q4

REPORT INFORMATION
  Report Type: 
  Country: None (occurrence: None)
  Receive Date: 20081121
  Receipt Date: 20081112
  Transmission Date: 20090506
  Serious: Yes (Life-Threatening)
  Sender: FDA-Public Use
  Company Number: JP-ROCHE-593509

PATIENT
  Sex: Male
  Weight: 60 kg

DRUGS (9)
  1. ROCEPHIN [Suspect]
     Indication: PNEUMONIA
     Route: 041
     Dates: start: 20081014, end: 20081021
  2. GLUFAST [Concomitant]
     Route: 048
     Dates: start: 20020101, end: 20081014
  3. LASIX [Concomitant]
     Route: 048
     Dates: start: 20050101, end: 20081020
  4. MUCOSTA [Concomitant]
     Route: 048
     Dates: start: 20050101, end: 20081020
  5. EPADEL [Concomitant]
     Route: 048
     Dates: start: 20050101, end: 20081020
  6. RENAGEL [Concomitant]
     Route: 048
     Dates: start: 20060101, end: 20081020
  7. CALTAN [Concomitant]
     Route: 048
     Dates: start: 20060101, end: 20081020
  8. VASOLAN [Concomitant]
     Route: 048
     Dates: start: 20061101, end: 20081020
  9. ASPIRIN [Concomitant]
     Route: 048
     Dates: start: 20061101, end: 20081020

REACTIONS (1)
  - WERNICKE'S ENCEPHALOPATHY [None]
